FAERS Safety Report 4778768-4 (Version None)
Quarter: 2005Q3

REPORT INFORMATION
  Report Type: 
  Country: None (occurrence: None)
  Receive Date: 20050926
  Receipt Date: 20050825
  Transmission Date: 20060218
  Serious: Yes (Hospitalization, Congenital Anomaly)
  Sender: FDA-Public Use
  Company Number: PHBS2005JP12440

PATIENT
  Sex: Male

DRUGS (3)
  1. SANDIMMUNE [Suspect]
     Dosage: FOETAL DRUG EXPOSURE VIA FATHER
  2. RINDERON-VG [Concomitant]
     Dosage: FOETAL DRUG EXPOSURE VIA FATHER
  3. FULMETA [Concomitant]
     Dosage: FOETAL DRUG EXPOSURE VIA FATHER

REACTIONS (3)
  - SURGERY [None]
  - TRANSMISSION OF DRUG VIA SEMEN [None]
  - TRANSPOSITION OF THE GREAT VESSELS [None]
